FAERS Safety Report 25846718 (Version 1)
Quarter: 2025Q3

REPORT INFORMATION
  Report Type: Spontaneous
  Country: US (occurrence: None)
  Receive Date: 20250925
  Receipt Date: 20250925
  Transmission Date: 20251021
  Serious: Yes (Hospitalization)
  Sender: FDA-CTU
  Company Number: None

PATIENT
  Age: 67 Year
  Sex: Male
  Weight: 86 kg

DRUGS (2)
  1. CARBOPLATIN [Suspect]
     Active Substance: CARBOPLATIN
     Dates: end: 20250826
  2. ALIMTA [Suspect]
     Active Substance: PEMETREXED DISODIUM
     Dates: end: 20250826

REACTIONS (7)
  - Hypoxia [None]
  - Oesophageal fistula [None]
  - Bronchial fistula [None]
  - Fatigue [None]
  - Cough [None]
  - Dysphagia [None]
  - Vomiting [None]

NARRATIVE: CASE EVENT DATE: 20250923
